FAERS Safety Report 13054214 (Version 1)
Quarter: 2016Q4

REPORT INFORMATION
  Report Type: Report from Study
  Country: US (occurrence: US)
  Receive Date: 20161222
  Receipt Date: 20161222
  Transmission Date: 20170207
  Serious: Yes (Other)
  Sender: FDA-Public Use
  Company Number: US-PACIRA PHARMACEUTICALS, INC.-2016DEPUS00705

PATIENT
  Sex: Female

DRUGS (2)
  1. METHOTREXATE. [Suspect]
     Active Substance: METHOTREXATE
     Indication: BREAST CANCER
     Dosage: 8 G/M2 EVERY TWO WEEKS UNK
  2. DEPOCYT [Suspect]
     Active Substance: CYTARABINE
     Indication: METASTASES TO MENINGES
     Dosage: 50MG, EVERY TWO WEEKS
     Route: 037

REACTIONS (1)
  - Transaminases increased [Unknown]
